FAERS Safety Report 7578084-1 (Version None)
Quarter: 2011Q2

REPORT INFORMATION
  Report Type: 
  Country: None (occurrence: None)
  Receive Date: 20110628
  Receipt Date: 20100722
  Transmission Date: 20111010
  Serious: No
  Sender: FDA-Public Use
  Company Number: US-PFIZER INC-2010092795

PATIENT
  Sex: Female
  Weight: 95.238 kg

DRUGS (4)
  1. DETROL LA [Suspect]
     Indication: POLLAKIURIA
     Dosage: 2 MG, DAILY
     Route: 048
  2. DETROL [Suspect]
     Indication: INCONTINENCE
  3. DETROL [Suspect]
     Indication: POLLAKIURIA
     Dosage: 2 MG, 2X/DAY
     Route: 048
  4. DETROL LA [Suspect]
     Indication: INCONTINENCE

REACTIONS (1)
  - DRUG INEFFECTIVE [None]
